FAERS Safety Report 5377400-9 (Version None)
Quarter: 2007Q3

REPORT INFORMATION
  Report Type: 
  Country: None (occurrence: None)
  Receive Date: 20070703
  Receipt Date: 20070627
  Transmission Date: 20080115
  Serious: Yes (Other)
  Sender: FDA-Public Use
  Company Number: A0661109A

PATIENT
  Sex: Female

DRUGS (2)
  1. PAXIL [Suspect]
     Indication: DRUG USE FOR UNKNOWN INDICATION
  2. EFFEXOR [Concomitant]

REACTIONS (9)
  - CRYING [None]
  - HYPOAESTHESIA [None]
  - NERVOUSNESS [None]
  - PANIC REACTION [None]
  - PARAESTHESIA [None]
  - PARANOIA [None]
  - SOMNOLENCE [None]
  - SUICIDAL IDEATION [None]
  - VISUAL ACUITY REDUCED [None]
